FAERS Safety Report 9301299 (Version 3)
Quarter: 2013Q3

REPORT INFORMATION
  Report Type: Spontaneous
  Country: US (occurrence: US)
  Receive Date: 20130521
  Receipt Date: 20130719
  Transmission Date: 20140515
  Serious: Yes (Other)
  Sender: FDA-Public Use
  Company Number: US-ABBOTT-13P-163-1090101-00

PATIENT
  Age: 52 Year
  Sex: Female
  Weight: 40.86 kg

DRUGS (8)
  1. VICODIN [Suspect]
     Indication: MOBILITY DECREASED
     Dosage: 4 TO 5 TABLETS
     Dates: start: 2007
  2. VICODIN [Suspect]
     Indication: FALL
  3. HYDROCODONE [Suspect]
     Indication: MOBILITY DECREASED
     Dates: start: 2007
  4. HYDROCODONE [Suspect]
     Indication: FALL
  5. OXYCODONE [Suspect]
     Indication: MOBILITY DECREASED
     Dates: start: 2007, end: 2007
  6. OXYCODONE [Suspect]
     Indication: FALL
  7. LYRICA [Suspect]
     Indication: PRODUCT USED FOR UNKNOWN INDICATION
     Dates: start: 201303, end: 201304
  8. PREGABALIN [Concomitant]
     Indication: PRODUCT USED FOR UNKNOWN INDICATION

REACTIONS (6)
  - Surgery [Unknown]
  - Fall [Unknown]
  - Drug ineffective [Unknown]
  - Pain [Unknown]
  - Visual impairment [Unknown]
  - Abasia [Unknown]
